FAERS Safety Report 20769878 (Version 3)
Quarter: 2022Q4

REPORT INFORMATION
  Report Type: Report from Study
  Country: TR (occurrence: TR)
  Receive Date: 20220429
  Receipt Date: 20221101
  Transmission Date: 20230112
  Serious: Yes (Hospitalization, Other)
  Sender: FDA-Public Use
  Company Number: TR-ABBVIE-22K-161-4374883-00

PATIENT
  Sex: Female

DRUGS (7)
  1. CARBIDOPA\LEVODOPA [Suspect]
     Active Substance: CARBIDOPA\LEVODOPA
     Indication: Parkinson^s disease
     Dosage: MORNING DOSE (ML): 4.00 CONTINUOUS DOSE (ML): 1.90 EXTRA DOSE (ML): 1.00
     Route: 050
     Dates: start: 20220316, end: 20220425
  2. CARBIDOPA\LEVODOPA [Suspect]
     Active Substance: CARBIDOPA\LEVODOPA
     Dosage: MORNING DOSE (ML): 3.00 CONTINUOUS DOSE (ML): 3.00 EXTRA DOSE (ML): 1.00
     Route: 050
     Dates: start: 20220505
  3. CARBIDOPA\LEVODOPA [Suspect]
     Active Substance: CARBIDOPA\LEVODOPA
     Dosage: MORNING DOSE (ML): 3.00 CONTINIOUS DOSE (ML): 2.60 EXTRA DOSE (ML): 1.00
  4. QUETIAPINE (SEROQUE) [Concomitant]
     Indication: Parkinson^s disease
     Route: 048
  5. SERTRALINE (MISOL) [Concomitant]
     Indication: Parkinson^s disease
     Route: 048
  6. LIPITOR [Concomitant]
     Active Substance: ATORVASTATIN CALCIUM
     Indication: Blood cholesterol
     Route: 048
  7. LEVOTHYROXINE SODIUM (LEVATIRON) [Concomitant]
     Indication: Goitre
     Route: 048

REACTIONS (4)
  - Tuberculosis [Unknown]
  - Pulmonary mass [Recovered/Resolved]
  - Bradykinesia [Not Recovered/Not Resolved]
  - Device occlusion [Unknown]

NARRATIVE: CASE EVENT DATE: 20220101
